FAERS Safety Report 25615250 (Version 1)
Quarter: 2025Q3

REPORT INFORMATION
  Report Type: Spontaneous
  Country: US (occurrence: US)
  Receive Date: 20250729
  Receipt Date: 20250729
  Transmission Date: 20251020
  Serious: Yes (Hospitalization)
  Sender: NOVO NORDISK
  Company Number: US-NOVOPROD-1484727

PATIENT
  Age: 70 Year
  Sex: Female

DRUGS (2)
  1. VICTOZA [Suspect]
     Active Substance: LIRAGLUTIDE
     Indication: Glycosylated haemoglobin increased
     Dosage: 2.4 IU, QD
     Route: 058
     Dates: start: 2022
  2. VICTOZA [Suspect]
     Active Substance: LIRAGLUTIDE
     Indication: Glycosylated haemoglobin increased
     Dosage: 2.4 MG, QD
     Route: 058
     Dates: start: 2022

REACTIONS (1)
  - Bacterial infection [Recovered/Resolved]

NARRATIVE: CASE EVENT DATE: 20230101
